FAERS Safety Report 16663668 (Version 2)
Quarter: 2019Q3

REPORT INFORMATION
  Report Type: Report from Study
  Country: US (occurrence: US)
  Receive Date: 20190802
  Receipt Date: 20190916
  Transmission Date: 20191004
  Serious: Yes (Other)
  Sender: FDA-Public Use
  Company Number: US-FERRINGPH-2019FE04662

PATIENT
  Age: 14 Year
  Sex: Female
  Weight: 30 kg

DRUGS (1)
  1. SOMATROPIN. [Suspect]
     Active Substance: SOMATROPIN
     Indication: GROWTH HORMONE DEFICIENCY
     Dosage: 1.1 MG, DAILY
     Route: 058
     Dates: start: 20180801, end: 20190724

REACTIONS (6)
  - Peripheral swelling [Recovering/Resolving]
  - Petechiae [Recovering/Resolving]
  - Peripheral swelling [Recovering/Resolving]
  - Blindness [Recovering/Resolving]
  - Nausea [Recovering/Resolving]
  - Coagulation test abnormal [Recovering/Resolving]

NARRATIVE: CASE EVENT DATE: 201907
